FAERS Safety Report 7081545-5 (Version None)
Quarter: 2010Q4

REPORT INFORMATION
  Report Type: 
  Country: None (occurrence: None)
  Receive Date: 20101103
  Receipt Date: 20101021
  Transmission Date: 20110411
  Serious: Yes (Other)
  Sender: FDA-Public Use
  Company Number: IE-PFIZER INC-2010128414

PATIENT
  Age: 48 Year
  Sex: Male

DRUGS (5)
  1. ATORVASTATIN CALCIUM [Suspect]
     Dosage: 40 MG, 1X/DAY
  2. FUSIDIC ACID [Interacting]
     Indication: WOUND INFECTION STAPHYLOCOCCAL
     Dosage: 1.5 MG/DAY
     Route: 048
  3. FUSIDIC ACID [Interacting]
     Indication: SEPTIC ARTHRITIS STAPHYLOCOCCAL
  4. LINEZOLID [Concomitant]
     Indication: WOUND INFECTION STAPHYLOCOCCAL
     Dosage: UNK
  5. LINEZOLID [Concomitant]
     Indication: SEPTIC ARTHRITIS STAPHYLOCOCCAL

REACTIONS (2)
  - DRUG INTERACTION [None]
  - RHABDOMYOLYSIS [None]
